FAERS Safety Report 6518078-8 (Version None)
Quarter: 2009Q4

REPORT INFORMATION
  Report Type: 
  Country: None (occurrence: None)
  Receive Date: 20091223
  Receipt Date: 20091208
  Transmission Date: 20100525
  Serious: Yes (Hospitalization)
  Sender: FDA-Public Use
  Company Number: OMPQ-NO-0910S-0881

PATIENT
  Age: 79 Year
  Sex: Male

DRUGS (10)
  1. OMNIPAQUE 350 [Suspect]
     Indication: AORTIC ANEURYSM
     Dosage: 100 ML, SINGLE DOSE, I.V.
     Route: 042
     Dates: start: 20090928, end: 20090928
  2. BROTIZOLAM (LENDORMIN D) [Concomitant]
  3. PREDNISOLONE [Concomitant]
  4. ISONIAZIDE (ISCOTIN) [Concomitant]
  5. LASIX [Concomitant]
  6. AMLODIPINE BESILATE (NORVASC OD) [Concomitant]
  7. ACETYLSALICYLIC ACID (BAYASPIRIN) [Concomitant]
  8. CODEINE PHOSPHATE, PRUNUS SEROTINA BARK (BROCIN-CODEINE) [Concomitant]
  9. MAGNESIUM OXIDE [Concomitant]
  10. ALFACALCIDOL (ALFAROL) [Concomitant]

REACTIONS (7)
  - AORTIC ANEURYSM RUPTURE [None]
  - DYSPNOEA [None]
  - EOSINOPHILIC PNEUMONIA [None]
  - LUNG DISORDER [None]
  - LUNG INFILTRATION [None]
  - ORGANISING PNEUMONIA [None]
  - PYREXIA [None]
